FAERS Safety Report 8142874-7 (Version None)
Quarter: 2012Q1

REPORT INFORMATION
  Report Type: 
  Country: None (occurrence: None)
  Receive Date: 20120217
  Receipt Date: 20101105
  Transmission Date: 20120608
  Serious: Yes (Hospitalization, Other)
  Sender: FDA-Public Use
  Company Number: AR-AMGEN-ARGCT2010003851

PATIENT
  Age: 68 Year
  Sex: Female
  Weight: 60 kg

DRUGS (1)
  1. ENBREL [Suspect]
     Indication: RHEUMATOID ARTHRITIS
     Dosage: 50 MG, WEEKLY
     Route: 058
     Dates: end: 20100826

REACTIONS (5)
  - RENAL FAILURE [None]
  - CHOLELITHIASIS [None]
  - PANCREATITIS [None]
  - BLOOD URINE PRESENT [None]
  - URINARY INCONTINENCE [None]
